FAERS Safety Report 24169308 (Version 1)
Quarter: 2024Q3

REPORT INFORMATION
  Report Type: Report from Study
  Country: US (occurrence: None)
  Receive Date: 20240802
  Receipt Date: 20240802
  Transmission Date: 20241016
  Serious: Yes (Other)
  Sender: ASTRAZENECA
  Company Number: 2023A143461

PATIENT
  Sex: Female

DRUGS (2)
  1. TAGRISSO [Suspect]
     Active Substance: OSIMERTINIB
     Route: 048
  2. AMMONIUM LACTATE [Concomitant]
     Active Substance: AMMONIUM LACTATE

REACTIONS (7)
  - Cardiac failure [Unknown]
  - Cerebrovascular accident [Unknown]
  - Optic nerve injury [Unknown]
  - Blindness unilateral [Unknown]
  - Eye discharge [Unknown]
  - Fatigue [Unknown]
  - Dry skin [Recovered/Resolved]
